FAERS Safety Report 24387748 (Version 1)
Quarter: 2024Q4

REPORT INFORMATION
  Report Type: Spontaneous
  Country: US (occurrence: None)
  Receive Date: 20241001
  Receipt Date: 20241001
  Transmission Date: 20250114
  Serious: Yes (Disabling)
  Sender: Public
  Company Number: None

PATIENT
  Age: 79 Year
  Sex: Female
  Weight: 69.75 kg

DRUGS (13)
  1. RECLAST [Suspect]
     Active Substance: ZOLEDRONIC ACID
     Indication: Osteoporosis
     Dates: start: 20240607, end: 20240607
  2. LEVOTHYROXINE [Concomitant]
     Active Substance: LEVOTHYROXINE
  3. DULOXETINE [Concomitant]
     Active Substance: DULOXETINE
  4. BUPROPION [Concomitant]
     Active Substance: BUPROPION
  5. ATORVASTATIN [Concomitant]
     Active Substance: ATORVASTATIN
  6. OXYBUTYNIN [Concomitant]
     Active Substance: OXYBUTYNIN
  7. OMEPRAZOLE [Concomitant]
     Active Substance: OMEPRAZOLE
  8. CELECOXIB [Concomitant]
     Active Substance: CELECOXIB
  9. TYLENOL [Concomitant]
     Active Substance: ACETAMINOPHEN
  10. VITAMIN D3 [Concomitant]
     Active Substance: CHOLECALCIFEROL
  11. VITAMIN B COMPLEX [Concomitant]
     Active Substance: CYANOCOBALAMIN\DEXPANTHENOL\NIACINAMIDE\PYRIDOXINE HYDROCHLORIDE\RIBOFLAVIN 5^-PHOSPHATE SODIUM\THIA
  12. FISH OIL [Concomitant]
     Active Substance: FISH OIL
  13. VITAMIN B12 [Concomitant]
     Active Substance: CYANOCOBALAMIN

REACTIONS (8)
  - Urinary tract infection [None]
  - Shoulder arthroplasty [None]
  - Anaemia [None]
  - Myalgia [None]
  - Bone pain [None]
  - Neuralgia [None]
  - Gait disturbance [None]
  - Pain in extremity [None]

NARRATIVE: CASE EVENT DATE: 20240607
